FAERS Safety Report 9551268 (Version 1)
Quarter: 2013Q3

REPORT INFORMATION
  Report Type: Other
  Country: JP (occurrence: JP)
  Receive Date: 20130925
  Receipt Date: 20130925
  Transmission Date: 20140515
  Serious: Yes (Death, Other)
  Sender: FDA-Public Use
  Company Number: JP-ACTELION-A-CH2013-88720

PATIENT
  Age: 47 Year
  Sex: Female

DRUGS (4)
  1. TRACLEER [Suspect]
     Indication: PULMONARY HYPERTENSION
     Dosage: UNK
     Route: 048
     Dates: start: 2007
  2. EPOPROSTENOL [Concomitant]
     Dosage: 3.8 NG/KG, PER MIN
  3. DOPAMINE [Concomitant]
     Dosage: 3 ?G/KG, PER MIN
  4. DOBUTAMINE [Concomitant]
     Dosage: 3 ?G/KG, PER MIN

REACTIONS (5)
  - Metastatic pulmonary embolism [Fatal]
  - Gastrointestinal carcinoma [Fatal]
  - Haemodynamic test abnormal [Recovering/Resolving]
  - Circulatory collapse [Recovering/Resolving]
  - Thrombotic microangiopathy [Fatal]
